FAERS Safety Report 9272928 (Version 1)
Quarter: 2013Q2

REPORT INFORMATION
  Report Type: Report from Study
  Country: VE (occurrence: VE)
  Receive Date: 20130506
  Receipt Date: 20130506
  Transmission Date: 20140414
  Serious: Yes (Other)
  Sender: FDA-Public Use
  Company Number: VE-ABBOTT-13P-178-1083537-00

PATIENT
  Sex: Female
  Weight: 78 kg

DRUGS (2)
  1. HUMIRA [Suspect]
     Indication: RHEUMATOID ARTHRITIS
     Route: 058
     Dates: start: 20111108, end: 201210
  2. METROTEXATE [Concomitant]
     Indication: RHEUMATOID ARTHRITIS
     Dosage: 4 WEEKLY, ROUTE VO
     Dates: start: 2012, end: 201209

REACTIONS (1)
  - Hepatitis [Recovering/Resolving]
